FAERS Safety Report 9553766 (Version 1)
Quarter: 2013Q3

REPORT INFORMATION
  Report Type: Spontaneous
  Country: US (occurrence: US)
  Receive Date: 20130925
  Receipt Date: 20130925
  Transmission Date: 20140515
  Serious: No
  Sender: FDA-Public Use
  Company Number: US-FOUGERA-2012FO001426

PATIENT
  Sex: Female

DRUGS (3)
  1. LIDOCAINE AND; PRILOCAINE [Suspect]
     Indication: PRODUCT USED FOR UNKNOWN INDICATION
  2. ZINC OXIDE [Suspect]
     Indication: PRODUCT USED FOR UNKNOWN INDICATION
  3. MOMETASONE FUROATE [Suspect]
     Indication: PRODUCT USED FOR UNKNOWN INDICATION

REACTIONS (1)
  - Fungal infection [Unknown]
